FAERS Safety Report 7557560-1 (Version None)
Quarter: 2011Q2

REPORT INFORMATION
  Report Type: 
  Country: None (occurrence: None)
  Receive Date: 20110620
  Receipt Date: 20110610
  Transmission Date: 20111010
  Serious: Yes (Hospitalization)
  Sender: FDA-Public Use
  Company Number: US-AMGEN-US189501

PATIENT
  Sex: Female

DRUGS (3)
  1. EPOGEN [Suspect]
     Indication: PRE-EXISTING DISEASE
     Dosage: UNK UNK, UNK
  2. INTERFERON [Concomitant]
     Dosage: UNK UNK, UNK
  3. RIBAVIRIN [Concomitant]
     Dosage: UNK UNK, UNK

REACTIONS (3)
  - TREMOR [None]
  - PYREXIA [None]
  - CHILLS [None]
